FAERS Safety Report 5168740-7 (Version None)
Quarter: 2006Q4

REPORT INFORMATION
  Report Type: 
  Country: None (occurrence: None)
  Receive Date: 20061211
  Receipt Date: 20061201
  Transmission Date: 20070319
  Serious: Yes (Hospitalization)
  Sender: FDA-Public Use
  Company Number: US-JNJFOC-20061201200

PATIENT
  Sex: Female

DRUGS (17)
  1. INFLIXIMAB [Suspect]
     Indication: RHEUMATOID ARTHRITIS
     Route: 042
  2. ASPIRIN [Concomitant]
  3. BENADRYL [Concomitant]
  4. CALCIUM [Concomitant]
  5. EYE DROPS [Concomitant]
  6. METHOTREXATE [Concomitant]
  7. NORVASC [Concomitant]
  8. POTASSIUM ACETATE [Concomitant]
  9. SALAGEN [Concomitant]
  10. SYNTHROID [Concomitant]
  11. TRAMADOL HCL [Concomitant]
  12. VICODEN [Concomitant]
     Dosage: 7.5/750 TWICE DAILY
  13. MELATONIN [Concomitant]
  14. MACRODANTIN [Concomitant]
  15. MOBIC [Concomitant]
  16. GLUCOSAMINE/CHONDROITIN [Concomitant]
  17. MULTI-VITAMIN [Concomitant]

REACTIONS (2)
  - ASTHMA [None]
  - BRONCHITIS [None]
